FAERS Safety Report 6263081-9 (Version None)
Quarter: 2009Q3

REPORT INFORMATION
  Report Type: 
  Country: None (occurrence: None)
  Receive Date: 20090708
  Receipt Date: 20090708
  Transmission Date: 20100115
  Serious: Yes (Other)
  Sender: FDA-Public Use
  Company Number: None

PATIENT
  Age: 63 Year
  Sex: Female
  Weight: 74.3899 kg

DRUGS (1)
  1. ZICAM NASAL SPRAY [Suspect]
     Indication: NASAL CONGESTION
     Dosage: 1 SPRAY 1X 12HR
     Dates: start: 20081101, end: 20090210

REACTIONS (2)
  - AGEUSIA [None]
  - ANOSMIA [None]
